FAERS Safety Report 9671155 (Version 1)
Quarter: 2013Q4

REPORT INFORMATION
  Report Type: Spontaneous
  Country: IT (occurrence: IT)
  Receive Date: 20131106
  Receipt Date: 20131106
  Transmission Date: 20140711
  Serious: Yes (Hospitalization)
  Sender: FDA-Public Use
  Company Number: IT-BAXTER-2013BAX042841

PATIENT
  Age: 62 Year
  Sex: Female

DRUGS (3)
  1. HOLOXAN [Suspect]
     Indication: SARCOMA
     Route: 042
     Dates: start: 20131001, end: 20131003
  2. MESNA [Suspect]
     Indication: SARCOMA
     Route: 065
     Dates: start: 20131001, end: 20131003
  3. DOXORUBICIN [Suspect]
     Indication: SARCOMA
     Dates: start: 20131001, end: 20131003

REACTIONS (4)
  - Hypoxia [Recovered/Resolved]
  - Oxygen saturation decreased [Recovered/Resolved]
  - Tachycardia [Recovered/Resolved]
  - Pulmonary oedema [Recovered/Resolved]
